FAERS Safety Report 10847037 (Version 1)
Quarter: 2015Q1

REPORT INFORMATION
  Report Type: Spontaneous
  Country: US (occurrence: US)
  Receive Date: 20150220
  Receipt Date: 20150220
  Transmission Date: 20150721
  Serious: Yes (Death, Hospitalization)
  Sender: FDA-Public Use
  Company Number: US-JNJFOC-20150215060

PATIENT
  Age: 74 Year
  Sex: Female

DRUGS (2)
  1. IMBRUVICA [Suspect]
     Active Substance: IBRUTINIB
     Indication: MANTLE CELL LYMPHOMA
     Route: 048
     Dates: start: 20141230, end: 20150118
  2. METOPROLOL [Concomitant]
     Active Substance: METOPROLOL

REACTIONS (9)
  - Respiratory failure [Not Recovered/Not Resolved]
  - Ventricular tachycardia [Recovered/Resolved]
  - Weight decreased [Unknown]
  - Intestinal perforation [Not Recovered/Not Resolved]
  - Small intestinal obstruction [Unknown]
  - Septic shock [Fatal]
  - Pneumonia [Not Recovered/Not Resolved]
  - Sepsis [Fatal]
  - Atrial fibrillation [Recovered/Resolved]

NARRATIVE: CASE EVENT DATE: 201412
